FAERS Safety Report 23284341 (Version 1)
Quarter: 2023Q4

REPORT INFORMATION
  Report Type: Spontaneous
  Country: US (occurrence: US)
  Receive Date: 20231211
  Receipt Date: 20231211
  Transmission Date: 20240110
  Serious: No
  Sender: FDA-Public Use
  Company Number: US-PFIZER INC-202300422686

PATIENT
  Age: 74 Year
  Sex: Female
  Weight: 74.84 kg

DRUGS (6)
  1. PAXLOVID [Suspect]
     Active Substance: NIRMATRELVIR\RITONAVIR
     Indication: COVID-19 treatment
     Dosage: [NIRMATRELVIR 300 MG]/[RITONAVIR 100 MG]; 2X/DAY FOR 5 DAYS
     Dates: start: 20231129
  2. IVERMECTIN [Concomitant]
     Active Substance: IVERMECTIN
     Dosage: UNK
     Dates: start: 20231126
  3. RETINOL [Concomitant]
     Active Substance: RETINOL
     Dosage: UNK
     Dates: start: 20231126
  4. VITAMIN B COMPLEX [Concomitant]
     Active Substance: CYANOCOBALAMIN\DEXPANTHENOL\NIACINAMIDE\PYRIDOXINE HYDROCHLORIDE\RIBOFLAVIN 5^-PHOSPHATE SODIUM\THIA
     Dosage: UNK
     Dates: start: 20231126
  5. VITAMIN D NOS [Concomitant]
     Active Substance: VITAMIN D NOS
     Dosage: UNK
     Dates: start: 20231126
  6. ZINC [Concomitant]
     Active Substance: PYRITHIONE ZINC\ZINC\ZINC CHLORIDE
     Dosage: UNK
     Dates: start: 20231126

REACTIONS (5)
  - Dysgeusia [Unknown]
  - Insomnia [Unknown]
  - Nausea [Unknown]
  - Illness [Unknown]
  - Pain [Unknown]
